FAERS Safety Report 18195010 (Version 1)
Quarter: 2020Q3

REPORT INFORMATION
  Report Type: Spontaneous
  Country: FR (occurrence: FR)
  Receive Date: 20200825
  Receipt Date: 20200825
  Transmission Date: 20201103
  Serious: Yes (Other)
  Sender: FDA-Public Use
  Company Number: NVSC2020FR230389

PATIENT
  Age: 44 Year
  Sex: Female

DRUGS (1)
  1. IBUPROFENE SANDOZ [Suspect]
     Active Substance: IBUPROFEN
     Indication: DRUG PROVOCATION TEST
     Dosage: 400 MG
     Route: 048
     Dates: start: 20190923, end: 20190923

REACTIONS (2)
  - Laryngeal discomfort [Recovered/Resolved]
  - Urticaria [Recovered/Resolved]

NARRATIVE: CASE EVENT DATE: 20190923
